FAERS Safety Report 9947724 (Version 1)
Quarter: 2014Q1

REPORT INFORMATION
  Report Type: Report from Study
  Country: US (occurrence: US)
  Receive Date: 20140303
  Receipt Date: 20140303
  Transmission Date: 20141002
  Serious: No
  Sender: FDA-Public Use
  Company Number: US-ABBVIE-13P-163-1058943-00

PATIENT
  Age: 58 Year
  Sex: Female

DRUGS (5)
  1. HUMIRA [Suspect]
     Indication: RHEUMATOID ARTHRITIS
     Dates: start: 201203
  2. METHOTREXATE [Concomitant]
     Indication: PRODUCT USED FOR UNKNOWN INDICATION
     Dosage: 4 TABS / WEEK
  3. OSTEOPOROSIS MEDICATION [Concomitant]
     Indication: OSTEOPOROSIS
     Dosage: 1 TAB EVERY 2 WEEKS
  4. AMBIEN [Concomitant]
     Indication: INSOMNIA
     Dosage: 1 TAB AT BEDTIME AS NEEDED
  5. OXYCODONE / ACETAMINOPHEN [Concomitant]
     Indication: PAIN
     Dosage: 1 TAB AS NEEDED

REACTIONS (4)
  - Nasopharyngitis [Not Recovered/Not Resolved]
  - Headache [Not Recovered/Not Resolved]
  - Myalgia [Not Recovered/Not Resolved]
  - Non-cardiac chest pain [Not Recovered/Not Resolved]
